FAERS Safety Report 6906224-3 (Version None)
Quarter: 2010Q3

REPORT INFORMATION
  Report Type: 
  Country: None (occurrence: None)
  Receive Date: 20100804
  Receipt Date: 20100730
  Transmission Date: 20110219
  Serious: Yes (Other)
  Sender: FDA-Public Use
  Company Number: US-CEPHALON-2010004066

PATIENT
  Age: 60 Year
  Sex: Male

DRUGS (3)
  1. NUVIGIL [Suspect]
     Indication: SLEEP APNOEA SYNDROME
     Route: 048
  2. NUVIGIL [Suspect]
     Indication: NARCOLEPSY
  3. METOCLOPRAMIDE [Suspect]
     Dates: start: 19950101

REACTIONS (1)
  - TARDIVE DYSKINESIA [None]
